FAERS Safety Report 5078580-5 (Version None)
Quarter: 2006Q3

REPORT INFORMATION
  Report Type: 
  Country: None (occurrence: None)
  Receive Date: 20060810
  Receipt Date: 20060810
  Transmission Date: 20061208
  Serious: No
  Sender: FDA-Public Use
  Company Number: None

PATIENT
  Sex: Female
  Weight: 51.7101 kg

DRUGS (2)
  1. DIPROLENE AF [Suspect]
     Indication: MUCOUS MEMBRANE DISORDER
     Dosage: TOPICALLY - BID
     Route: 061
  2. DIPROLENE AF [Suspect]
     Indication: PEMPHIGOID
     Dosage: TOPICALLY - BID
     Route: 061

REACTIONS (1)
  - DRUG EFFECT DECREASED [None]
